FAERS Safety Report 7892715-8 (Version None)
Quarter: 2011Q4

REPORT INFORMATION
  Report Type: 
  Country: None (occurrence: None)
  Receive Date: 20111102
  Receipt Date: 20111027
  Transmission Date: 20120403
  Serious: Yes (Other)
  Sender: FDA-Public Use
  Company Number: DKLU1074277

PATIENT
  Age: 13 Year
  Sex: Female

DRUGS (8)
  1. BLEOMYCIN SULFATE [Suspect]
     Indication: HODGKIN'S DISEASE STAGE III
     Dosage: 6 COURSES
  2. ONCOVIN [Suspect]
     Indication: HODGKIN'S DISEASE STAGE III
     Dosage: 6 COURSES
  3. PREDNISONE TAB [Suspect]
     Indication: HODGKIN'S DISEASE STAGE III
     Dosage: 6 COURSES
  4. VINBLASTINE SULFATE [Suspect]
     Indication: HODGKIN'S DISEASE STAGE III
     Dosage: 6 COURSES
  5. DACARBAZINE [Suspect]
     Indication: HODGKIN'S DISEASE STAGE III
     Dosage: 6 COURSES
  6. PROCARBAZINE HYDROCHLORIDE [Suspect]
     Indication: HODGKIN'S DISEASE STAGE III
     Dosage: 6 COURSES
  7. ADRIAMYCIN PFS [Suspect]
     Indication: HODGKIN'S DISEASE STAGE III
     Dosage: 6 COURSES
  8. MUSTARGEN [Suspect]
     Indication: HODGKIN'S DISEASE STAGE III
     Dosage: 6 COURSES

REACTIONS (5)
  - METAPLASIA [None]
  - VOMITING [None]
  - OESOPHAGEAL STENOSIS [None]
  - BARRETT'S OESOPHAGUS [None]
  - MUCOSAL INFLAMMATION [None]
